FAERS Safety Report 12653231 (Version 1)
Quarter: 2016Q3

REPORT INFORMATION
  Report Type: Spontaneous
  Country: US (occurrence: US)
  Receive Date: 20160815
  Receipt Date: 20160815
  Transmission Date: 20161109
  Serious: Yes (Hospitalization)
  Sender: FDA-Public Use
  Company Number: US-BAUSCH-BL-2016-017860

PATIENT
  Age: 78 Year
  Sex: Male

DRUGS (2)
  1. PROVENGE [Suspect]
     Active Substance: SIPULEUCEL-T
     Indication: PROSTATE CANCER
     Route: 042
     Dates: start: 20160728, end: 20160728
  2. PROVENGE [Suspect]
     Active Substance: SIPULEUCEL-T
     Route: 042
     Dates: start: 20160804, end: 20160804

REACTIONS (7)
  - Feeling cold [Unknown]
  - Blood pressure systolic increased [Unknown]
  - Blood pressure decreased [Unknown]
  - Tremor [Unknown]
  - Nausea [Unknown]
  - Blood pressure diastolic decreased [Unknown]
  - Vomiting [Unknown]

NARRATIVE: CASE EVENT DATE: 20160804
